FAERS Safety Report 7809989-1 (Version None)
Quarter: 2011Q4

REPORT INFORMATION
  Report Type: 
  Country: None (occurrence: None)
  Receive Date: 20111012
  Receipt Date: 20111004
  Transmission Date: 20120403
  Serious: Yes (Hospitalization)
  Sender: FDA-Public Use
  Company Number: RU-PFIZER INC-2011240207

PATIENT
  Age: 49 Year
  Sex: Female

DRUGS (1)
  1. CORDARONE [Suspect]
     Indication: HEART RATE DECREASED
     Dosage: UNK
     Route: 048
     Dates: start: 20110101, end: 20110601

REACTIONS (3)
  - PORTAL HYPERTENSION [None]
  - HEPATITIS [None]
  - SYNCOPE [None]
